FAERS Safety Report 5352286-7 (Version None)
Quarter: 2007Q2

REPORT INFORMATION
  Report Type: 
  Country: None (occurrence: None)
  Receive Date: 20070607
  Receipt Date: 20070607
  Transmission Date: 20071010
  Serious: Yes (Hospitalization, Other)
  Sender: FDA-Public Use
  Company Number: None

PATIENT
  Age: 54 Year
  Sex: Female
  Weight: 93.441 kg

DRUGS (1)
  1. ZELNORM [Suspect]
     Indication: CONSTIPATION
     Dosage: 2 PILLS 1/DAY PO
     Route: 048
     Dates: start: 20030102, end: 20070415

REACTIONS (4)
  - DYSPNOEA [None]
  - INTESTINAL CYST [None]
  - LARGE INTESTINE PERFORATION [None]
  - NASAL OPERATION [None]
